FAERS Safety Report 8965745 (Version 1)
Quarter: 2012Q4

REPORT INFORMATION
  Report Type: Spontaneous
  Country: DE (occurrence: None)
  Receive Date: 20121204
  Receipt Date: 20121204
  Transmission Date: 20130627
  Serious: Yes (Other)
  Sender: FDA-Public Use
  Company Number: 2012-20815

PATIENT
  Sex: Female

DRUGS (3)
  1. SERTRALINE HYDROCHLORIDE [Suspect]
     Indication: DEPRESSION
     Dosage: 50 [mg/d] beginning unclear, taken until delivery
     Route: 064
  2. MIRTAZAPINE [Suspect]
     Dosage: 15 [mg/d]/ since December 2011
     Route: 064
  3. CENTRUM [Concomitant]

REACTIONS (2)
  - Infantile apnoeic attack [None]
  - Maternal drugs affecting foetus [None]
